FAERS Safety Report 20970871 (Version 3)
Quarter: 2022Q3

REPORT INFORMATION
  Report Type: Report from Study
  Country: US (occurrence: US)
  Receive Date: 20220616
  Receipt Date: 20220825
  Transmission Date: 20221026
  Serious: Yes (Other)
  Sender: FDA-Public Use
  Company Number: US-ABBVIE-22K-163-4399468-00

PATIENT
  Sex: Female

DRUGS (4)
  1. IMBRUVICA [Suspect]
     Active Substance: IBRUTINIB
     Indication: Chronic lymphocytic leukaemia
     Route: 048
     Dates: start: 20220505
  2. COVID-19 VACCINE NOS [Suspect]
     Active Substance: COVID-19 VACCINE NOS
     Indication: COVID-19 immunisation
     Dosage: FIRST DOSE
     Route: 030
  3. COVID-19 VACCINE NOS [Suspect]
     Active Substance: COVID-19 VACCINE NOS
     Dosage: SECOND DOSE
     Route: 030
  4. COVID-19 VACCINE NOS [Suspect]
     Active Substance: COVID-19 VACCINE NOS
     Dosage: BOOSTER DOSE
     Route: 030

REACTIONS (20)
  - Neoplasm malignant [Not Recovered/Not Resolved]
  - Lymphadenopathy [Unknown]
  - Bone pain [Unknown]
  - Chest pain [Unknown]
  - Feeling hot [Unknown]
  - Reading disorder [Unknown]
  - Sputum discoloured [Unknown]
  - Cognitive disorder [Unknown]
  - Illness [Unknown]
  - Gastric disorder [Unknown]
  - Seasonal allergy [Unknown]
  - Alopecia [Unknown]
  - Hypersensitivity [Unknown]
  - Oropharyngeal pain [Unknown]
  - Urinary tract infection [Unknown]
  - Gait disturbance [Unknown]
  - Pain in extremity [Unknown]
  - Gait disturbance [Unknown]
  - Constipation [Unknown]
  - Diarrhoea [Unknown]

NARRATIVE: CASE EVENT DATE: 20220101
